FAERS Safety Report 5076050-1 (Version None)
Quarter: 2006Q3

REPORT INFORMATION
  Report Type: 
  Country: None (occurrence: None)
  Receive Date: 20060725
  Receipt Date: 20060331
  Transmission Date: 20061208
  Serious: No
  Sender: FDA-Public Use
  Company Number: 200612231BWH

PATIENT
  Sex: Male

DRUGS (1)
  1. NEXAVAR [Suspect]
     Indication: DRUG USE FOR UNKNOWN INDICATION

REACTIONS (8)
  - ALOPECIA [None]
  - BLOOD PRESSURE INCREASED [None]
  - EYE PRURITUS [None]
  - GLOSSODYNIA [None]
  - PAIN IN EXTREMITY [None]
  - PAIN OF SKIN [None]
  - SINUS DISORDER [None]
  - SKIN DISORDER [None]
